FAERS Safety Report 4445706-3 (Version None)
Quarter: 2004Q3

REPORT INFORMATION
  Report Type: 
  Country: None (occurrence: None)
  Receive Date: 20040908
  Receipt Date: 20040908
  Transmission Date: 20050211
  Serious: No
  Sender: FDA-Public Use
  Company Number: None

PATIENT
  Sex: Female
  Weight: 100.2449 kg

DRUGS (2)
  1. CARDIZEM CD [Suspect]
  2. COUMADIN [Suspect]

REACTIONS (5)
  - DIZZINESS [None]
  - FATIGUE [None]
  - HEADACHE [None]
  - PHARMACEUTICAL PRODUCT COMPLAINT [None]
  - RASH ERYTHEMATOUS [None]
